FAERS Safety Report 25945908 (Version 1)
Quarter: 2025Q4

REPORT INFORMATION
  Report Type: Spontaneous
  Country: EU (occurrence: EU)
  Receive Date: 20251021
  Receipt Date: 20251021
  Transmission Date: 20260117
  Serious: Yes (Hospitalization, Other)
  Sender: MERCK SHARP & DOHME LLC
  Company Number: None

PATIENT
  Age: 67 Year
  Sex: Male

DRUGS (6)
  1. FIDAXOMICIN [Suspect]
     Active Substance: FIDAXOMICIN
     Indication: Clostridium difficile infection
     Dosage: THE PATIENT WAS HOSPITALIZED DUE TO THE EVENT CLOSTRIDIUM DIFFICILE COLITIS. PATIENT WAS INITIALL...
     Route: 065
  2. VANCOMYCIN [Suspect]
     Active Substance: VANCOMYCIN
     Indication: Staphylococcal sepsis
     Dosage: THE PATIENT WAS HOSPITALIZED DUE TO SEPSIS FROM A RESPIRATORY SOURCE CAUSED BY METHICILLIN-SUSCEP...
     Route: 065
  3. VANCOMYCIN [Suspect]
     Active Substance: VANCOMYCIN
     Indication: Staphylococcal sepsis
     Dosage: THE PATIENT WAS HOSPITALIZED DUE TO THE EVENT CLOSTRIDIUM DIFFICILE COLITIS. PATIENT WAS INITIALL...
     Route: 065
  4. LINEZOLID [Suspect]
     Active Substance: LINEZOLID
     Indication: Staphylococcal sepsis
     Dosage: THE PATIENT WAS HOSPITALIZED DUE TO SEPSIS FROM A RESPIRATORY SOURCE CAUSED BY METHICILLIN-SUSCEP...
     Route: 065
  5. CLINDAMYCIN [Suspect]
     Active Substance: CLINDAMYCIN
     Indication: Staphylococcal sepsis
     Dosage: THE PATIENT WAS HOSPITALIZED DUE TO SEPSIS FROM A RESPIRATORY SOURCE CAUSED BY METHICILLIN-SUSCEP...
     Route: 065
  6. LEVOFLOXACIN [Suspect]
     Active Substance: LEVOFLOXACIN
     Indication: Staphylococcal sepsis
     Dosage: THE PATIENT WAS HOSPITALIZED DUE TO SEPSIS FROM A RESPIRATORY SOURCE CAUSED BY METHICILLIN-SUSCEP...
     Route: 065

REACTIONS (6)
  - Clostridium difficile colitis [Recovering/Resolving]
  - Pancreatic failure [Recovering/Resolving]
  - Pseudomembranous colitis [Recovering/Resolving]
  - Intestinal atony [Recovering/Resolving]
  - Diarrhoea [Recovering/Resolving]
  - Megacolon [Recovering/Resolving]
